FAERS Safety Report 6202799-0 (Version None)
Quarter: 2009Q2

REPORT INFORMATION
  Report Type: 
  Country: None (occurrence: None)
  Receive Date: 20090526
  Receipt Date: 20090511
  Transmission Date: 20091009
  Serious: Yes (Death, Hospitalization, Other)
  Sender: FDA-Public Use
  Company Number: FR-PFIZER INC-2007054426

PATIENT
  Age: 45 Year

DRUGS (30)
  1. VORICONAZOLE [Suspect]
     Indication: FUNGAL INFECTION
     Dosage: 420 MG, 2X/DAY
     Route: 042
     Dates: start: 20070102, end: 20070102
  2. VORICONAZOLE [Suspect]
     Dosage: 280 MG, 2X/DAY
     Route: 042
     Dates: start: 20070103, end: 20070103
  3. VORICONAZOLE [Suspect]
     Dosage: 200 MG, 2X/DAY
     Route: 048
     Dates: start: 20070104, end: 20070113
  4. VORICONAZOLE [Suspect]
     Dosage: 200 MG, 1X/DAY
     Route: 048
     Dates: start: 20070114, end: 20070114
  5. VORICONAZOLE [Suspect]
     Dosage: 200 MG, 2X/DAY
     Route: 048
     Dates: start: 20070115, end: 20070122
  6. VORICONAZOLE [Suspect]
     Dosage: 200 MG, 1X/DAY
     Route: 048
     Dates: start: 20070123, end: 20070123
  7. VORICONAZOLE [Suspect]
     Dosage: 200 MG, 2X/DAY
     Route: 048
     Dates: start: 20070124, end: 20070223
  8. DELURSAN [Concomitant]
     Route: 048
     Dates: start: 20061222, end: 20070329
  9. LEVOTHYROXINE SODIUM [Concomitant]
     Route: 048
  10. COLISTIN [Concomitant]
     Route: 048
     Dates: start: 20061222, end: 20070329
  11. NEOMYCIN SULFATE [Concomitant]
     Route: 048
     Dates: start: 20061222
  12. VANCOMYCIN [Concomitant]
     Route: 048
     Dates: start: 20061222, end: 20070329
  13. LEXOMIL [Concomitant]
     Route: 048
     Dates: start: 20061222, end: 20070329
  14. ACICLOVIR [Concomitant]
     Route: 048
     Dates: start: 20061224
  15. ESOMEPRAZOLE MAGNESIUM [Concomitant]
     Route: 042
     Dates: start: 20070123
  16. FOLIC ACID [Concomitant]
     Route: 042
     Dates: start: 20061230
  17. DEXCHLORPHENIRAMINE MALEATE [Concomitant]
     Route: 042
     Dates: start: 20070102
  18. MAGNESIUM [Concomitant]
     Dosage: UNK
     Route: 042
     Dates: start: 20070107
  19. SPASFON [Concomitant]
     Route: 042
     Dates: start: 20070307
  20. AMOXICILLIN TRIHYDRATE [Concomitant]
     Route: 042
     Dates: start: 20070309
  21. ETHAMBUTOL DIHYDROCHLORIDE [Concomitant]
     Route: 042
     Dates: start: 20070309
  22. RIFAMPICIN [Concomitant]
     Route: 042
     Dates: start: 20070309
  23. AMBISOME [Concomitant]
     Route: 042
     Dates: start: 20070309
  24. PARACETAMOL [Concomitant]
     Route: 042
     Dates: start: 20070310
  25. TRANXENE [Concomitant]
     Route: 042
     Dates: start: 20070311
  26. ISONIAZID [Concomitant]
     Route: 042
     Dates: start: 20070311
  27. ALBUMIN HUMAN [Concomitant]
     Route: 042
     Dates: start: 20070314, end: 20070314
  28. GENTAMICIN [Concomitant]
  29. DOMPERIDONE [Concomitant]
  30. ACUPAN [Concomitant]

REACTIONS (2)
  - HYPOVOLAEMIC SHOCK [None]
  - SHOCK HAEMORRHAGIC [None]
